FAERS Safety Report 6918999-8 (Version None)
Quarter: 2010Q3

REPORT INFORMATION
  Report Type: 
  Country: None (occurrence: None)
  Receive Date: 20100811
  Receipt Date: 20100728
  Transmission Date: 20110219
  Serious: Yes (Other)
  Sender: FDA-Public Use
  Company Number: GB-ELI_LILLY_AND_COMPANY-GB201007007454

PATIENT
  Age: 25 Year
  Sex: Male

DRUGS (1)
  1. OLANZAPINE [Suspect]
     Dosage: 15-40 MG, UNKNOWN
     Route: 065

REACTIONS (3)
  - NO THERAPEUTIC RESPONSE [None]
  - OVERDOSE [None]
  - PSYCHIATRIC DECOMPENSATION [None]
